FAERS Safety Report 6017301-6 (Version None)
Quarter: 2008Q4

REPORT INFORMATION
  Report Type: 
  Country: None (occurrence: None)
  Receive Date: 20081219
  Receipt Date: 20081203
  Transmission Date: 20090506
  Serious: Yes (Life-Threatening, Hospitalization)
  Sender: FDA-Public Use
  Company Number: 8040275

PATIENT
  Age: 6 Year
  Sex: Male
  Weight: 20 kg

DRUGS (3)
  1. LEVETIRACETAM [Suspect]
     Indication: CONVULSION
     Dosage: 500 MG 2/D PO
     Route: 048
     Dates: start: 20080921, end: 20081102
  2. CHLORPHENIRAMINE MALEATE [Concomitant]
  3. WARFARIN SODIUM [Concomitant]

REACTIONS (1)
  - THROMBOCYTOPENIC PURPURA [None]
